FAERS Safety Report 4652737-7 (Version None)
Quarter: 2005Q2

REPORT INFORMATION
  Report Type: 
  Country: None (occurrence: None)
  Receive Date: 20050502
  Receipt Date: 20050419
  Transmission Date: 20051028
  Serious: Yes (Hospitalization)
  Sender: FDA-Public Use
  Company Number: 2005021137

PATIENT
  Age: 18 Year
  Sex: Male
  Weight: 77.1115 kg

DRUGS (2)
  1. DRAMAMINE [Suspect]
     Indication: EUPHORIC MOOD
     Dosage: 15 TABLETS AT ONCE INTERMITTENTLY, ORAL
     Route: 048
     Dates: start: 20041001, end: 20050201
  2. CORICIDIN [Suspect]
     Indication: EUPHORIC MOOD
     Dosage: UNSPECIFIED AMOUNT, ONCE
     Dates: start: 20050125, end: 20050125

REACTIONS (4)
  - DEPRESSION [None]
  - HEPATIC ENZYME INCREASED [None]
  - INTENTIONAL MISUSE [None]
  - PSYCHOTIC DISORDER [None]
